FAERS Safety Report 7486236-4 (Version None)
Quarter: 2011Q2

REPORT INFORMATION
  Report Type: 
  Country: None (occurrence: None)
  Receive Date: 20110517
  Receipt Date: 20110215
  Transmission Date: 20111010
  Serious: No
  Sender: FDA-Public Use
  Company Number: A0914341A

PATIENT
  Sex: Male

DRUGS (1)
  1. VOTRIENT [Suspect]
     Dosage: 800MG PER DAY
     Route: 048
     Dates: start: 20110202

REACTIONS (12)
  - ANORECTAL DISCOMFORT [None]
  - SKIN IRRITATION [None]
  - WEIGHT INCREASED [None]
  - HAIR COLOUR CHANGES [None]
  - PRURITUS [None]
  - FATIGUE [None]
  - NASAL DRYNESS [None]
  - INCREASED APPETITE [None]
  - BURNING SENSATION [None]
  - COUGH [None]
  - SKIN DISCOLOURATION [None]
  - DIARRHOEA [None]
